FAERS Safety Report 8033087-8 (Version None)
Quarter: 2011Q4

REPORT INFORMATION
  Report Type: 
  Country: None (occurrence: None)
  Receive Date: 20111228
  Receipt Date: 20111219
  Transmission Date: 20120403
  Serious: Yes (Life-Threatening, Disabling)
  Sender: FDA-Public Use
  Company Number: 2011SP059193

PATIENT
  Age: 54 Year
  Sex: Female

DRUGS (8)
  1. FUROSEMIDE [Concomitant]
  2. RIBAVIRIN [Suspect]
     Indication: PRODUCT USED FOR UNKNOWN INDICATION
     Dates: start: 20111030
  3. SPIRONOLACTONE [Concomitant]
  4. PROCRIT [Concomitant]
  5. PEGASYS [Suspect]
     Indication: PRODUCT USED FOR UNKNOWN INDICATION
     Dates: start: 20111030
  6. NADOLOL [Concomitant]
  7. VICTRELIS [Suspect]
     Indication: PRODUCT USED FOR UNKNOWN INDICATION
     Dosage: 800 MG;TID;PO
     Route: 048
     Dates: start: 20111203, end: 20111212
  8. MACRODANTIN [Concomitant]

REACTIONS (10)
  - ABDOMINAL PAIN [None]
  - PLATELET COUNT DECREASED [None]
  - VARICES OESOPHAGEAL [None]
  - ULTRASOUND SCAN ABNORMAL [None]
  - LIVER DISORDER [None]
  - JOINT SWELLING [None]
  - ABDOMINAL DISCOMFORT [None]
  - ASCITES [None]
  - DIARRHOEA [None]
  - LYMPHADENOPATHY [None]
